FAERS Safety Report 8550295-8 (Version None)
Quarter: 2012Q3

REPORT INFORMATION
  Report Type: 
  Country: None (occurrence: None)
  Receive Date: 20120730
  Receipt Date: 20120726
  Transmission Date: 20120928
  Serious: Yes (Death, Congenital Anomaly, Other)
  Sender: FDA-Public Use
  Company Number: PHHY2012GB064544

PATIENT
  Sex: Male

DRUGS (2)
  1. LAMOTRIGINE [Suspect]
     Route: 064
  2. FOLIC ACID [Suspect]
     Route: 064

REACTIONS (8)
  - RENAL APLASIA [None]
  - EXPOSURE VIA FATHER [None]
  - PREMATURE BABY [None]
  - MATERNAL DRUGS AFFECTING FOETUS [None]
  - ANAL ATRESIA [None]
  - POLYDACTYLY [None]
  - FOETAL EXPOSURE DURING PREGNANCY [None]
  - DEATH [None]
